FAERS Safety Report 8221376-3 (Version None)
Quarter: 2012Q1

REPORT INFORMATION
  Report Type: 
  Country: None (occurrence: None)
  Receive Date: 20120320
  Receipt Date: 20120309
  Transmission Date: 20120608
  Serious: Yes (Disabling)
  Sender: FDA-Public Use
  Company Number: FR-FRI-1000008839

PATIENT
  Sex: Female

DRUGS (2)
  1. ESCITALOPRAM [Suspect]
     Indication: DEPRESSION
     Dosage: 10 MG
     Route: 048
     Dates: start: 20080101, end: 20090707
  2. TAMOXIFEN CITRATE [Concomitant]
     Indication: BREAST NEOPLASM
     Dosage: 1 DOSAGE FORM
     Route: 048
     Dates: start: 20070101, end: 20090501

REACTIONS (4)
  - DYSTONIA [None]
  - SPEECH DISORDER [None]
  - DYSKINESIA [None]
  - DYSPHAGIA [None]
